FAERS Safety Report 4457267-3 (Version None)
Quarter: 2004Q3

REPORT INFORMATION
  Report Type: 
  Country: None (occurrence: None)
  Receive Date: 20040921
  Receipt Date: 20040907
  Transmission Date: 20050211
  Serious: Yes (Hospitalization)
  Sender: FDA-Public Use
  Company Number: 702130

PATIENT
  Age: 57 Year
  Sex: Male

DRUGS (3)
  1. AMEVIVE [Suspect]
     Dosage: 15 MG QW IM
     Route: 030
     Dates: start: 20031006, end: 20040112
  2. AMEVIVE [Suspect]
     Dosage: 15 MG QW IM
     Route: 030
     Dates: start: 20040308, end: 20040330
  3. AMEVIVE [Suspect]
     Dosage: 15 MG QW IM
     Route: 030
     Dates: start: 20040520

REACTIONS (3)
  - CD4 LYMPHOCYTES DECREASED [None]
  - HERPES ZOSTER [None]
  - LIVER DISORDER [None]
